FAERS Safety Report 4464905-8 (Version None)
Quarter: 2004Q4

REPORT INFORMATION
  Report Type: 
  Country: None (occurrence: None)
  Receive Date: 20041004
  Receipt Date: 20040203
  Transmission Date: 20050328
  Serious: Yes (Other)
  Sender: FDA-Public Use
  Company Number: 361788

PATIENT

DRUGS (1)
  1. COREG [Suspect]
     Indication: CARDIAC FAILURE
     Dosage: 12.5MG TWICE PER DAY
     Route: 048

REACTIONS (2)
  - DIZZINESS [None]
  - HYPOGLYCAEMIA [None]
